FAERS Safety Report 8996235 (Version 1)
Quarter: 2013Q1

REPORT INFORMATION
  Report Type: Spontaneous
  Country: DE (occurrence: DE)
  Receive Date: 20130103
  Receipt Date: 20130103
  Transmission Date: 20140127
  Serious: Yes (Life-Threatening, Hospitalization)
  Sender: FDA-Public Use
  Company Number: GXKR2013DE000444

PATIENT
  Sex: Female

DRUGS (1)
  1. CODEINE PHOSPHATE [Suspect]
     Indication: COUGH
     Dosage: 90 DRP, UNK
     Route: 048

REACTIONS (4)
  - Blood pressure decreased [Not Recovered/Not Resolved]
  - Heart rate decreased [Not Recovered/Not Resolved]
  - Muscular weakness [Not Recovered/Not Resolved]
  - Vomiting [Not Recovered/Not Resolved]
